FAERS Safety Report 9151055 (Version 6)
Quarter: 2014Q3

REPORT INFORMATION
  Report Type: Spontaneous
  Country: US (occurrence: US)
  Receive Date: 20130308
  Receipt Date: 20140916
  Transmission Date: 20150326
  Serious: Yes (Other)
  Sender: FDA-Public Use
  Company Number: US-ASTELLAS-2013US001470

PATIENT
  Sex: Male

DRUGS (3)
  1. LUPRON [Suspect]
     Active Substance: LEUPROLIDE ACETATE
     Route: 065
  2. XTANDI [Suspect]
     Active Substance: ENZALUTAMIDE
     Indication: PROSTATE CANCER
     Route: 048
     Dates: start: 201301
  3. LUPRON [Suspect]
     Active Substance: LEUPROLIDE ACETATE
     Indication: PRODUCT USED FOR UNKNOWN INDICATION
     Dosage: UNK, CYCLIC
     Route: 065

REACTIONS (13)
  - Malignant neoplasm progression [Unknown]
  - Asthenia [Unknown]
  - Injection site pain [Not Recovered/Not Resolved]
  - Blood testosterone abnormal [Unknown]
  - Off label use [Unknown]
  - Fatigue [Unknown]
  - Metastasis [Unknown]
  - Hypotrichosis [Unknown]
  - Pollakiuria [Not Recovered/Not Resolved]
  - Hot flush [Unknown]
  - Memory impairment [Not Recovered/Not Resolved]
  - Gynaecomastia [Unknown]
  - Diarrhoea [Recovered/Resolved]

NARRATIVE: CASE EVENT DATE: 20140819
